FAERS Safety Report 25554033 (Version 1)
Quarter: 2025Q3

REPORT INFORMATION
  Report Type: Spontaneous
  Country: EU (occurrence: EU)
  Receive Date: 20250715
  Receipt Date: 20250715
  Transmission Date: 20251021
  Serious: Yes (Other)
  Sender: RANBAXY
  Company Number: EU-SUN PHARMACEUTICAL INDUSTRIES LTD-2025R1-516664

PATIENT
  Age: 65 Year
  Sex: Female

DRUGS (3)
  1. OMEGA 3 [Suspect]
     Active Substance: CAPSAICIN
     Indication: Hypercholesterolaemia
     Route: 065
  2. VITAMIN B COMPLEX [Suspect]
     Active Substance: CYANOCOBALAMIN\DEXPANTHENOL\NIACINAMIDE\PYRIDOXINE HYDROCHLORIDE\RIBOFLAVIN 5^-PHOSPHATE SODIUM\THIA
     Indication: Hypercholesterolaemia
     Route: 065
  3. COENZYME Q10 [Suspect]
     Active Substance: DIETARY SUPPLEMENT\UBIDECARENONE
     Indication: Hypercholesterolaemia
     Route: 065

REACTIONS (1)
  - Treatment failure [Unknown]
